FAERS Safety Report 8351421-6 (Version None)
Quarter: 2012Q2

REPORT INFORMATION
  Report Type: 
  Country: None (occurrence: None)
  Receive Date: 20120510
  Receipt Date: 20120504
  Transmission Date: 20120825
  Serious: Yes (Other)
  Sender: FDA-Public Use
  Company Number: US-RB-040040-12

PATIENT
  Age: 30 Year
  Sex: Male

DRUGS (4)
  1. SUBOXONE [Suspect]
     Dosage: 2 MG X 4 DOSES
     Route: 060
     Dates: start: 20120411, end: 20120411
  2. SUBOXONE [Suspect]
     Indication: DRUG DEPENDENCE
     Dosage: 12 MG DAILY
     Route: 060
     Dates: start: 20120412
  3. BENZODIAZEPINES [Suspect]
     Indication: SUBSTANCE USE
     Dosage: DOSING DETAILS UNKNOWN
     Route: 065
  4. GNC NUTRITIONAL SUPPLEMENTS [Concomitant]
     Indication: PRODUCT USED FOR UNKNOWN INDICATION
     Dosage: DOSING DETAILS UNKNOWN
     Route: 065

REACTIONS (3)
  - OFF LABEL USE [None]
  - WRONG TECHNIQUE IN DRUG USAGE PROCESS [None]
  - CONVULSION [None]
